FAERS Safety Report 12747298 (Version 1)
Quarter: 2016Q3

REPORT INFORMATION
  Report Type: Spontaneous
  Country: US (occurrence: US)
  Receive Date: 20160915
  Receipt Date: 20160915
  Transmission Date: 20161109
  Serious: No
  Sender: FDA-Public Use
  Company Number: US-JAZZ-2016-US-009695

PATIENT
  Sex: Female

DRUGS (30)
  1. XYREM [Suspect]
     Active Substance: SODIUM OXYBATE
     Indication: CATAPLEXY
     Dosage: DOSE ADJUSTMENTS
     Route: 048
  2. NALTREXONE [Concomitant]
     Active Substance: NALTREXONE
  3. NORCO [Concomitant]
     Active Substance: ACETAMINOPHEN\HYDROCODONE BITARTRATE
  4. PHENERGAN [Concomitant]
     Active Substance: PROMETHAZINE HYDROCHLORIDE
  5. AMBIEN CR [Concomitant]
     Active Substance: ZOLPIDEM TARTRATE
  6. ZOFRAN [Concomitant]
     Active Substance: ONDANSETRON HYDROCHLORIDE
  7. XYREM [Suspect]
     Active Substance: SODIUM OXYBATE
     Indication: NARCOLEPSY
     Dosage: 3 G, BID
     Route: 048
     Dates: start: 201405, end: 201405
  8. TROKENDI [Concomitant]
     Active Substance: TOPIRAMATE
  9. L-CARNITINE [Concomitant]
     Active Substance: LEVOCARNITINE
  10. AMBIEN [Concomitant]
     Active Substance: ZOLPIDEM TARTRATE
  11. IBUPROFEN. [Concomitant]
     Active Substance: IBUPROFEN
  12. FISH OIL [Concomitant]
     Active Substance: FISH OIL
  13. INDOMETHACIN. [Concomitant]
     Active Substance: INDOMETHACIN
  14. CALCIUM [Concomitant]
     Active Substance: CALCIUM
  15. LYRICA [Concomitant]
     Active Substance: PREGABALIN
  16. CLARITIN [Concomitant]
     Active Substance: LORATADINE
  17. BOTOX [Concomitant]
     Active Substance: ONABOTULINUMTOXINA
  18. GRALISE [Concomitant]
     Active Substance: GABAPENTIN
  19. MAXALT [Concomitant]
     Active Substance: RIZATRIPTAN BENZOATE
  20. DEMEROL [Concomitant]
     Active Substance: MEPERIDINE HYDROCHLORIDE
  21. KETOROLAC [Concomitant]
     Active Substance: KETOROLAC\KETOROLAC TROMETHAMINE
  22. MAGNESIUM CARBONATE [Concomitant]
     Active Substance: MAGNESIUM CARBONATE
  23. MULTIVITAMINS [Concomitant]
     Active Substance: VITAMINS
  24. TURMERIC [Concomitant]
     Active Substance: TURMERIC
  25. LEXAPRO [Concomitant]
     Active Substance: ESCITALOPRAM OXALATE
  26. MELATONIN [Concomitant]
     Active Substance: MELATONIN
  27. VITAMIN D [Concomitant]
     Active Substance: CHOLECALCIFEROL
  28. TRAZODONE [Concomitant]
     Active Substance: TRAZODONE HYDROCHLORIDE
  29. XYREM [Suspect]
     Active Substance: SODIUM OXYBATE
     Dosage: 4.5 G, BID
     Route: 048
     Dates: start: 201604
  30. CELEXA [Concomitant]
     Active Substance: CITALOPRAM HYDROBROMIDE

REACTIONS (3)
  - Depression [Recovering/Resolving]
  - Chronic fatigue syndrome [Not Recovered/Not Resolved]
  - Fibromyalgia [Not Recovered/Not Resolved]
